FAERS Safety Report 25866492 (Version 1)
Quarter: 2025Q3

REPORT INFORMATION
  Report Type: Spontaneous
  Country: US (occurrence: US)
  Receive Date: 20250930
  Receipt Date: 20250930
  Transmission Date: 20251021
  Serious: No
  Sender: PFIZER
  Company Number: US-PFIZER INC-202500192486

PATIENT

DRUGS (3)
  1. LORLATINIB [Suspect]
     Active Substance: LORLATINIB
  2. CLOFIBRATE [Concomitant]
     Active Substance: CLOFIBRATE
  3. EZETIMIBE [Concomitant]
     Active Substance: EZETIMIBE

REACTIONS (2)
  - Blood cholesterol increased [Unknown]
  - Myopathy [Unknown]
